FAERS Safety Report 24658994 (Version 1)
Quarter: 2024Q4

REPORT INFORMATION
  Report Type: Spontaneous
  Country: US (occurrence: None)
  Receive Date: 20241122
  Receipt Date: 20241122
  Transmission Date: 20250115
  Serious: Yes (Life-Threatening)
  Sender: Public
  Company Number: None

PATIENT
  Sex: 0

DRUGS (1)
  1. PACLITAXEL [Suspect]
     Active Substance: PACLITAXEL

REACTIONS (6)
  - Chest pain [None]
  - Back pain [None]
  - Dyspnoea [None]
  - Restlessness [None]
  - Loss of consciousness [None]
  - Pulse absent [None]

NARRATIVE: CASE EVENT DATE: 20240802
